FAERS Safety Report 13601131 (Version 1)
Quarter: 2017Q2

REPORT INFORMATION
  Report Type: Spontaneous
  Country: US (occurrence: US)
  Receive Date: 20170601
  Receipt Date: 20170601
  Transmission Date: 20170830
  Serious: Yes (Hospitalization)
  Sender: FDA-Public Use
  Company Number: None

PATIENT
  Age: 52 Year
  Sex: Male
  Weight: 72.3 kg

DRUGS (3)
  1. LENALIDOMIDE (CC-5013) [Suspect]
     Active Substance: LENALIDOMIDE
     Dates: end: 20170511
  2. DEXAMETHASONE. [Suspect]
     Active Substance: DEXAMETHASONE
     Dates: end: 20170509
  3. VELCADE [Suspect]
     Active Substance: BORTEZOMIB
     Dates: end: 20170508

REACTIONS (3)
  - Febrile neutropenia [None]
  - Asthenia [None]
  - Sepsis [None]

NARRATIVE: CASE EVENT DATE: 20170530
